FAERS Safety Report 16421761 (Version 1)
Quarter: 2019Q2

REPORT INFORMATION
  Report Type: Spontaneous
  Country: DE (occurrence: DE)
  Receive Date: 20190612
  Receipt Date: 20190612
  Transmission Date: 20190711
  Serious: Yes (Life-Threatening, Hospitalization, Other)
  Sender: FDA-Public Use
  Company Number: DE-PFIZER INC-2019219809

PATIENT
  Age: 82 Year
  Sex: Male
  Weight: 80 kg

DRUGS (8)
  1. RESILIENT [Concomitant]
     Active Substance: LITHIUM SULFATE
     Dosage: UNK, 1X/DAY (300 MG/25 MG, 1-0-0)
  2. SUTENT [Suspect]
     Active Substance: SUNITINIB MALATE
     Indication: METASTATIC RENAL CELL CARCINOMA
     Dosage: 50 MG, CYCLIC (2:1 SCHEDULE)
     Dates: start: 201904, end: 20190517
  3. AMLODIPIN [Concomitant]
     Active Substance: AMLODIPINE BESYLATE
     Dosage: 5 MG, 2X/DAY (1-0-1)
  4. HYDROMORPHONE [Concomitant]
     Active Substance: HYDROMORPHONE
     Dosage: 8 MG, 2X/DAY (1-0-1)
  5. PALLADON [Concomitant]
     Active Substance: HYDROMORPHONE
     Dosage: 1.3 MG, AS NEEDED
  6. MOVICOL [Concomitant]
     Active Substance: POLYETHYLENE GLYCOL 3350\POTASSIUM CHLORIDE\SODIUM BICARBONATE\SODIUM CHLORIDE
     Dosage: UNK, AS NEEDED
  7. PANTOZOL [Concomitant]
     Active Substance: PANTOPRAZOLE SODIUM
     Dosage: 40 MG, 1X/DAY (0-0-1)
  8. METOPROLOL. [Concomitant]
     Active Substance: METOPROLOL
     Dosage: 50 UNK, 1X/DAY (50 UNK, 1-0-0)

REACTIONS (4)
  - Thrombocytopenia [Recovered/Resolved]
  - Mouth haemorrhage [Unknown]
  - Haemoglobin decreased [Unknown]
  - Epistaxis [Unknown]

NARRATIVE: CASE EVENT DATE: 20190430
